FAERS Safety Report 9139688 (Version 1)
Quarter: 2013Q1

REPORT INFORMATION
  Report Type: Spontaneous
  Country: US (occurrence: US)
  Receive Date: 20130305
  Receipt Date: 20130305
  Transmission Date: 20140127
  Serious: No
  Sender: FDA-Public Use
  Company Number: US-ENDO PHARMACEUTICALS INC.-SPLN20120013

PATIENT
  Age: 9 Year
  Sex: Female
  Weight: 42 kg

DRUGS (3)
  1. SUPPRELIN LA [Suspect]
     Indication: PRECOCIOUS PUBERTY
     Route: 058
     Dates: start: 20110830, end: 2012
  2. ZYRTEC [Concomitant]
     Indication: SEASONAL ALLERGY
     Route: 048
  3. FLONASE [Concomitant]
     Indication: SEASONAL ALLERGY

REACTIONS (5)
  - Chest pain [Recovered/Resolved]
  - Anxiety [Recovered/Resolved]
  - Headache [Recovered/Resolved]
  - Mood swings [Recovered/Resolved]
  - Implant site pain [Recovered/Resolved]
